FAERS Safety Report 6557496-9 (Version None)
Quarter: 2010Q1

REPORT INFORMATION
  Report Type: 
  Country: None (occurrence: None)
  Receive Date: 20100129
  Receipt Date: 20100125
  Transmission Date: 20100710
  Serious: Yes (Life-Threatening, Hospitalization, Other)
  Sender: FDA-Public Use
  Company Number: DE-BRISTOL-MYERS SQUIBB COMPANY-13936356

PATIENT
  Age: 42 Year
  Sex: Female
  Weight: 86 kg

DRUGS (8)
  1. TAXOL [Suspect]
     Indication: BREAST CANCER
     Route: 042
     Dates: start: 20070809, end: 20071010
  2. CYCLOPHOSPHAMIDE [Suspect]
     Indication: BREAST CANCER
     Route: 042
     Dates: start: 20070614, end: 20070726
  3. CAPECITABINE [Suspect]
     Indication: BREAST CANCER
     Route: 048
     Dates: start: 20070809, end: 20071010
  4. EPIRUBICIN [Suspect]
     Indication: BREAST CANCER
     Route: 042
     Dates: start: 20070614, end: 20070726
  5. ARANESP [Suspect]
     Indication: BREAST CANCER
     Dates: start: 20070614, end: 20070824
  6. DEXAMETHASONE [Suspect]
     Indication: PROPHYLAXIS
     Dosage: DAILY ON DAY 1 TO 4
  7. GRANISETRON [Suspect]
     Indication: PROPHYLAXIS
     Dosage: ON DAY 0 TO 3
     Route: 048
  8. RANITIDINE [Suspect]
     Indication: ANTIALLERGIC THERAPY
     Dosage: 1 DF= 50 UNITS NOS, ONCE A DAY ON DAY 1

REACTIONS (1)
  - INTRACRANIAL VENOUS SINUS THROMBOSIS [None]
